FAERS Safety Report 9101797 (Version 2)
Quarter: 2013Q2

REPORT INFORMATION
  Report Type: Spontaneous
  Country: ES (occurrence: ES)
  Receive Date: 20130218
  Receipt Date: 20130611
  Transmission Date: 20140414
  Serious: Yes (Hospitalization)
  Sender: FDA-Public Use
  Company Number: ES-ELI_LILLY_AND_COMPANY-ES201302004158

PATIENT
  Age: 49 Year
  Sex: Female

DRUGS (2)
  1. RALOXIFENE HYDROCHLORIDE [Suspect]
     Indication: PROPHYLAXIS
     Dosage: 60 MG, QD
     Dates: start: 201111, end: 201211
  2. RALOXIFENE HYDROCHLORIDE [Suspect]
     Dosage: 60 MG, QD
     Dates: start: 201212

REACTIONS (3)
  - Uterine polyp [Recovered/Resolved]
  - Metrorrhagia [Recovered/Resolved]
  - Metrorrhagia [Recovered/Resolved]
